FAERS Safety Report 16884086 (Version 1)
Quarter: 2019Q4

REPORT INFORMATION
  Report Type: Spontaneous
  Country: US (occurrence: US)
  Receive Date: 20191004
  Receipt Date: 20191004
  Transmission Date: 20200122
  Serious: No
  Sender: FDA-Public Use
  Company Number: US-DSJP-DSU-2019-137841

PATIENT

DRUGS (9)
  1. MORPHINE [Suspect]
     Active Substance: MORPHINE
     Indication: BACK PAIN
     Dosage: 60 MG, QD
     Route: 048
     Dates: start: 201909, end: 20190924
  2. NORCO [Concomitant]
     Active Substance: ACETAMINOPHEN\HYDROCODONE BITARTRATE
     Indication: BACK PAIN
     Dosage: 7.5 MG, QD
     Route: 048
  3. MORPHABOND ER [Suspect]
     Active Substance: MORPHINE SULFATE
     Indication: BACK PAIN
     Dosage: 60 MG, BID
     Route: 048
     Dates: start: 201903, end: 201909
  4. HCTZ [Concomitant]
     Active Substance: HYDROCHLOROTHIAZIDE
     Indication: HYPERTENSION
     Dosage: UNK
     Route: 048
  5. GABAPENTIN. [Concomitant]
     Active Substance: GABAPENTIN
     Indication: BACK PAIN
     Dosage: 2400 MG, QD
     Route: 048
  6. MORPHINE [Suspect]
     Active Substance: MORPHINE
     Dosage: 60 MG, TID
     Route: 048
     Dates: start: 20190924
  7. MORPHABOND ER [Suspect]
     Active Substance: MORPHINE SULFATE
     Dosage: 60 MG, QD
     Route: 048
     Dates: start: 201909, end: 20190924
  8. MORPHINE [Suspect]
     Active Substance: MORPHINE
     Dosage: 60 MG, QD
     Route: 048
     Dates: start: 20190924
  9. AMLODIPINE [Concomitant]
     Active Substance: AMLODIPINE BESYLATE
     Indication: HYPERTENSION
     Dosage: 10 MG, QD
     Route: 048

REACTIONS (2)
  - Back pain [Unknown]
  - Off label use [Recovered/Resolved]

NARRATIVE: CASE EVENT DATE: 201909
